FAERS Safety Report 12738424 (Version 1)
Quarter: 2016Q3

REPORT INFORMATION
  Report Type: Spontaneous
  Country: US (occurrence: US)
  Receive Date: 20160913
  Receipt Date: 20160913
  Transmission Date: 20161109
  Serious: No
  Sender: FDA-Public Use
  Company Number: US-PFIZER INC-2016422811

PATIENT
  Age: 48 Year
  Sex: Male
  Weight: 97.52 kg

DRUGS (2)
  1. VIAGRA [Suspect]
     Active Substance: SILDENAFIL CITRATE
     Indication: ERECTILE DYSFUNCTION
     Dosage: 100 MG, 1X/DAY
     Route: 048
     Dates: start: 201607
  2. VIAGRA [Suspect]
     Active Substance: SILDENAFIL CITRATE
     Indication: EJACULATION FAILURE

REACTIONS (2)
  - Erection increased [Unknown]
  - Drug ineffective [Unknown]
